FAERS Safety Report 7081006-3 (Version None)
Quarter: 2010Q4

REPORT INFORMATION
  Report Type: 
  Country: None (occurrence: None)
  Receive Date: 20101103
  Receipt Date: 20101025
  Transmission Date: 20110411
  Serious: Yes (Death, Other)
  Sender: FDA-Public Use
  Company Number: FR-GENZYME-THYM-1002003

PATIENT
  Sex: Female

DRUGS (16)
  1. THYMOGLOBULIN [Suspect]
     Indication: HODGKIN'S DISEASE
     Dosage: UNK
     Route: 042
     Dates: start: 20100724, end: 20100727
  2. HEPARIN [Concomitant]
     Dosage: UNK
  3. VITAMIN B1 AND B6 [Concomitant]
  4. ONDANSETRON [Concomitant]
  5. EMEND [Concomitant]
  6. ALIZAPRIDE [Concomitant]
  7. CLONAZEPAM [Concomitant]
  8. FUROSEMIDE [Concomitant]
  9. FILGRASTIM [Concomitant]
     Dosage: UNK
     Dates: start: 20100721
  10. PIPERACILLIN [Concomitant]
     Dosage: UNK
     Dates: start: 20100724
  11. VANCOMYCIN [Concomitant]
     Dosage: UNK
     Dates: start: 20100728
  12. PENICILLIN G [Concomitant]
     Dosage: UNK
     Dates: start: 20100728
  13. CHLORPROMAZINE [Concomitant]
     Dosage: UNK
     Dates: start: 20100725
  14. COLIMICIN [Concomitant]
  15. TOBRAMYCIN [Concomitant]
  16. METRONIDAZOLE [Concomitant]

REACTIONS (10)
  - ACUTE RESPIRATORY DISTRESS SYNDROME [None]
  - ADVERSE DRUG REACTION [None]
  - DIARRHOEA [None]
  - HAEMORRHAGE [None]
  - HYPOKALAEMIA [None]
  - MULTI-ORGAN FAILURE [None]
  - PULMONARY ALVEOLAR HAEMORRHAGE [None]
  - SEPTIC SHOCK [None]
  - THROMBOCYTOPENIA [None]
  - VOMITING [None]
